FAERS Safety Report 17276701 (Version 9)
Quarter: 2021Q2

REPORT INFORMATION
  Report Type: Spontaneous
  Country: US (occurrence: US)
  Receive Date: 20200116
  Receipt Date: 20210621
  Transmission Date: 20210716
  Serious: No
  Sender: FDA-Public Use
  Company Number: US-VERTEX PHARMACEUTICALS-2020-000205

PATIENT
  Age: 39 Year
  Sex: Male
  Weight: 104 kg

DRUGS (37)
  1. CREON [Concomitant]
     Active Substance: PANCRELIPASE AMYLASE\PANCRELIPASE LIPASE\PANCRELIPASE PROTEASE
  2. CLONAZEPAM. [Concomitant]
     Active Substance: CLONAZEPAM
  3. EPINEPHRINE [EPINEPHRINE BITARTRATE] [Concomitant]
  4. NEXIUM I.V. [Concomitant]
     Active Substance: ESOMEPRAZOLE SODIUM
  5. FUROSEMIDE. [Concomitant]
     Active Substance: FUROSEMIDE
  6. TADALAFIL. [Concomitant]
     Active Substance: TADALAFIL
  7. AMICAR [Concomitant]
     Active Substance: AMINOCAPROIC ACID
  8. TRANEXAMIC ACID. [Concomitant]
     Active Substance: TRANEXAMIC ACID
  9. XYZAL ALLERGY 24HR [Concomitant]
     Active Substance: LEVOCETIRIZINE DIHYDROCHLORIDE
  10. LANTUS [Concomitant]
     Active Substance: INSULIN GLARGINE
  11. SODIUM CHLORIDE. [Concomitant]
     Active Substance: SODIUM CHLORIDE
     Dosage: 5ML VIAL
     Route: 055
  12. ANASTROZOLE. [Concomitant]
     Active Substance: ANASTROZOLE
  13. NORCO [Concomitant]
     Active Substance: ACETAMINOPHEN\HYDROCODONE BITARTRATE
  14. CULTURELLE [Concomitant]
     Active Substance: LACTOBACILLUS RHAMNOSUS
  15. ALBUTEROL SULFATE HFA [Concomitant]
     Active Substance: ALBUTEROL SULFATE
  16. MEPHYTON [Concomitant]
     Active Substance: PHYTONADIONE
  17. KLOR?CON [Concomitant]
     Active Substance: POTASSIUM CHLORIDE
  18. DOXYCYCLINE. [Concomitant]
     Active Substance: DOXYCYCLINE
  19. VANCOMYCIN [Concomitant]
     Active Substance: VANCOMYCIN
  20. VITAMIN A [RETINOL] [Concomitant]
     Active Substance: RETINOL
  21. PROAIR HFA [Concomitant]
     Active Substance: ALBUTEROL SULFATE
  22. AZELASTINE HCL [Concomitant]
     Active Substance: AZELASTINE HYDROCHLORIDE
  23. NYSTATIN [NYSTATIN;ZINC OXIDE [Concomitant]
  24. CAYSTON [Concomitant]
     Active Substance: AZTREONAM
  25. SPIRIVA RESPIMAT [Concomitant]
     Active Substance: TIOTROPIUM BROMIDE
  26. URSODIOL. [Concomitant]
     Active Substance: URSODIOL
  27. TRIKAFTA [Suspect]
     Active Substance: ELEXACAFTOR\IVACAFTOR\TEZACAFTOR
     Indication: CYSTIC FIBROSIS
     Dosage: 2 ORANGE TABS (100 MG ELEXA/50 MG TEZA/75 MG IVA) AM; 1 BLUE TAB (150 MG IVA) PM
     Route: 048
     Dates: start: 20191205
  28. KEPPRA [Concomitant]
     Active Substance: LEVETIRACETAM
  29. COLISTIMETHATE SODIUM. [Concomitant]
     Active Substance: COLISTIMETHATE SODIUM
  30. PREVACID [Concomitant]
     Active Substance: LANSOPRAZOLE
  31. VITAMIN D3 [Concomitant]
     Active Substance: CHOLECALCIFEROL
  32. FLEXERIL [CEFIXIME] [Concomitant]
     Active Substance: CEFIXIME
  33. PULMOZYME [Concomitant]
     Active Substance: DORNASE ALFA
  34. SODIUM BICARBONATE. [Concomitant]
     Active Substance: SODIUM BICARBONATE
  35. PROVENTIL [Concomitant]
     Active Substance: ALBUTEROL
  36. FLONASE [MOMETASONE FUROATE] [Concomitant]
     Active Substance: MOMETASONE FUROATE
  37. VENTOLIN HFA [Concomitant]
     Active Substance: ALBUTEROL SULFATE

REACTIONS (28)
  - Weight fluctuation [Unknown]
  - Product dose omission issue [Recovered/Resolved]
  - Headache [Unknown]
  - Fatigue [Unknown]
  - Blood glucose increased [Unknown]
  - Productive cough [Not Recovered/Not Resolved]
  - Chest discomfort [Unknown]
  - Influenza [Recovered/Resolved]
  - Intestinal obstruction [Unknown]
  - Peripheral swelling [Not Recovered/Not Resolved]
  - Arthralgia [Unknown]
  - Wheezing [Unknown]
  - Insomnia [Not Recovered/Not Resolved]
  - Haemoptysis [Unknown]
  - Pyrexia [Unknown]
  - Rales [Unknown]
  - Abdominal distension [Unknown]
  - Amnesia [Unknown]
  - Vomiting [Unknown]
  - Pain in extremity [Unknown]
  - Respiratory tract congestion [Unknown]
  - Pain [Unknown]
  - Back pain [Recovered/Resolved]
  - Weight increased [Recovering/Resolving]
  - Panic attack [Unknown]
  - Fluid retention [Unknown]
  - Nausea [Unknown]
  - Joint swelling [Recovering/Resolving]

NARRATIVE: CASE EVENT DATE: 201912
